FAERS Safety Report 8856375 (Version 1)
Quarter: 2012Q4

REPORT INFORMATION
  Report Type: Spontaneous
  Country: AU (occurrence: None)
  Receive Date: 20121018
  Receipt Date: 20121018
  Transmission Date: 20130627
  Serious: Yes (Other)
  Sender: FDA-Public Use
  Company Number: B0838260A

PATIENT
  Age: 34 Year
  Sex: Male

DRUGS (2)
  1. ORLISTAT [Suspect]
     Indication: WEIGHT DECREASED
     Route: 048
     Dates: start: 201009, end: 201012
  2. ATRIPLA [Suspect]
     Indication: HIV INFECTION
     Dates: start: 200902

REACTIONS (4)
  - HIV infection [None]
  - Viraemia [None]
  - Diarrhoea [None]
  - Steatorrhoea [None]
